FAERS Safety Report 9752276 (Version 1)
Quarter: 2013Q4

REPORT INFORMATION
  Report Type: Spontaneous
  Country: US (occurrence: None)
  Receive Date: 20131212
  Receipt Date: 20131212
  Transmission Date: 20140711
  Serious: No
  Sender: FDA-Public Use
  Company Number: None

PATIENT
  Age: 77 Year
  Sex: 0

DRUGS (9)
  1. ANDROJEL [Suspect]
     Indication: EMPTY SELLA SYNDROME
     Dosage: 1 % GEL 4 PUMPS Q D AT BEDTIME ON SKIN
     Dates: start: 20080101
  2. ANDROJEL [Suspect]
     Indication: BLOOD TESTOSTERONE DECREASED
     Dosage: 1 % GEL 4 PUMPS Q D AT BEDTIME ON SKIN
     Dates: start: 20080101
  3. COQ100 [Concomitant]
  4. GREEN TEA [Concomitant]
  5. GLUCOSAMINE [Concomitant]
  6. FISH OIL [Concomitant]
  7. B COMPLEX [Concomitant]
  8. VITAMIN D [Concomitant]
  9. ASPIRIN [Concomitant]

REACTIONS (2)
  - Product physical issue [None]
  - Underdose [None]
